FAERS Safety Report 14351219 (Version 1)
Quarter: 2018Q1

REPORT INFORMATION
  Report Type: Report from Study
  Country: FR (occurrence: FR)
  Receive Date: 20180104
  Receipt Date: 20180104
  Transmission Date: 20180509
  Serious: Yes (Hospitalization)
  Sender: FDA-Public Use
  Company Number: FR-JNJFOC-20151203484

PATIENT
  Age: 53 Year
  Sex: Female
  Weight: 103 kg

DRUGS (1)
  1. SIMPONI [Suspect]
     Active Substance: GOLIMUMAB
     Indication: ANKYLOSING SPONDYLITIS
     Route: 058
     Dates: start: 20150520

REACTIONS (9)
  - Muscle contracture [Unknown]
  - Fatigue [Unknown]
  - Somnolence [Unknown]
  - Pyelonephritis acute [Recovered/Resolved]
  - Pain [Not Recovered/Not Resolved]
  - Depression [Unknown]
  - Hypersensitivity [Unknown]
  - Disturbance in attention [Unknown]
  - Laryngitis [Unknown]

NARRATIVE: CASE EVENT DATE: 2015
